FAERS Safety Report 10025434 (Version 1)
Quarter: 2014Q1

REPORT INFORMATION
  Report Type: Spontaneous
  Country: US (occurrence: None)
  Receive Date: 20140314
  Receipt Date: 20140314
  Transmission Date: 20141002
  Serious: Yes (Hospitalization, Other)
  Sender: FDA-Public Use
  Company Number: AUR-APL-2014-02584

PATIENT
  Age: 5 Year
  Sex: Male

DRUGS (2)
  1. HYDROCODONE+PARACETAMOL (PARACETAMOL, HYDROCODONE) [Suspect]
     Indication: PAIN
     Dosage: ONE TABLET BYMOUTH EVERY 4 TO 6 HOURS
     Route: 048
  2. PARACETAMOL (PARACETAMOL) [Suspect]
     Indication: PAIN
     Dosage: 2 CAPLETS EVERY 4 TO 6 HOURS

REACTIONS (7)
  - Hepatotoxicity [None]
  - Vomiting [None]
  - Abdominal pain [None]
  - Decreased appetite [None]
  - Nausea [None]
  - Product label confusion [None]
  - Therapeutic response decreased [None]
